FAERS Safety Report 13489644 (Version 2)
Quarter: 2019Q1

REPORT INFORMATION
  Report Type: Spontaneous
  Country: US (occurrence: US)
  Receive Date: 20170427
  Receipt Date: 20190217
  Transmission Date: 20190417
  Serious: No
  Sender: FDA-Public Use
  Company Number: US-JNJFOC-20170427528

PATIENT
  Sex: Male

DRUGS (9)
  1. RISPERDAL [Suspect]
     Active Substance: RISPERIDONE
     Indication: AUTISM SPECTRUM DISORDER
     Dosage: IN VARYING DOSE OF 0.25 MG TO 02 MG
     Route: 048
     Dates: start: 20020930, end: 20061020
  2. SEROQUEL [Suspect]
     Active Substance: QUETIAPINE FUMARATE
     Indication: AUTISM SPECTRUM DISORDER
     Dosage: IN VARYING DOSE OF 25 MG TO 100 MG
     Route: 065
     Dates: start: 20070423, end: 20091215
  3. RISPERDAL [Suspect]
     Active Substance: RISPERIDONE
     Indication: OPPOSITIONAL DEFIANT DISORDER
     Dosage: IN VARYING DOSE OF 0.25 MG TO 02 MG
     Route: 048
     Dates: start: 20020930, end: 20061020
  4. RISPERDAL [Suspect]
     Active Substance: RISPERIDONE
     Indication: ATTENTION DEFICIT/HYPERACTIVITY DISORDER
     Dosage: IN VARYING DOSE OF 0.25 MG TO 02 MG
     Route: 048
     Dates: start: 20020930, end: 20061020
  5. SEROQUEL [Suspect]
     Active Substance: QUETIAPINE FUMARATE
     Indication: ATTENTION DEFICIT/HYPERACTIVITY DISORDER
     Dosage: IN VARYING DOSE OF 25 MG TO 100 MG
     Route: 065
     Dates: start: 20070423, end: 20091215
  6. SEROQUEL [Suspect]
     Active Substance: QUETIAPINE FUMARATE
     Indication: BIPOLAR DISORDER
     Dosage: IN VARYING DOSE OF 25 MG TO 100 MG
     Route: 065
     Dates: start: 20070423, end: 20091215
  7. RISPERDAL [Suspect]
     Active Substance: RISPERIDONE
     Indication: BIPOLAR DISORDER
     Dosage: IN VARYING DOSE OF 0.25 MG TO 02 MG
     Route: 048
     Dates: start: 20020930, end: 20061020
  8. RISPERIDONE. [Suspect]
     Active Substance: RISPERIDONE
     Indication: PRODUCT USED FOR UNKNOWN INDICATION
     Route: 065
  9. SEROQUEL [Suspect]
     Active Substance: QUETIAPINE FUMARATE
     Indication: OPPOSITIONAL DEFIANT DISORDER
     Dosage: IN VARYING DOSE OF 25 MG TO 100 MG
     Route: 065
     Dates: start: 20070423, end: 20091215

REACTIONS (3)
  - Therapy cessation [Unknown]
  - Gynaecomastia [Unknown]
  - Emotional disorder [Unknown]
